FAERS Safety Report 5715706-1 (Version None)
Quarter: 2008Q2

REPORT INFORMATION
  Report Type: 
  Country: None (occurrence: None)
  Receive Date: 20080422
  Receipt Date: 20080414
  Transmission Date: 20081010
  Serious: Yes (Hospitalization)
  Sender: FDA-Public Use
  Company Number: B0517252A

PATIENT
  Age: 30 Year
  Sex: Male

DRUGS (1)
  1. TRANYLCYPROMINE SULFATE [Suspect]
     Indication: MIGRAINE
     Dosage: 40 MG/ PER DAY/ ORAL
     Route: 048

REACTIONS (17)
  - AGGRESSION [None]
  - ALANINE AMINOTRANSFERASE INCREASED [None]
  - ASPARTATE AMINOTRANSFERASE INCREASED [None]
  - BLOOD CREATINE PHOSPHOKINASE INCREASED [None]
  - BLOOD GLUCOSE DECREASED [None]
  - DELIRIUM [None]
  - DRUG ABUSE [None]
  - DRUG DEPENDENCE [None]
  - DRUG INEFFECTIVE [None]
  - DRUG WITHDRAWAL SYNDROME [None]
  - FALL [None]
  - HALLUCINATION [None]
  - INCORRECT DOSE ADMINISTERED [None]
  - INSULIN C-PEPTIDE DECREASED [None]
  - MENTAL STATUS CHANGES [None]
  - THROMBOCYTHAEMIA [None]
  - THROMBOCYTOPENIA [None]
